FAERS Safety Report 20436080 (Version 2)
Quarter: 2022Q1

REPORT INFORMATION
  Report Type: Spontaneous
  Country: CA (occurrence: CA)
  Receive Date: 20220207
  Receipt Date: 20220208
  Transmission Date: 20220423
  Serious: Yes (Other)
  Sender: FDA-Public Use
  Company Number: None

PATIENT
  Age: 64 Year
  Sex: Female

DRUGS (6)
  1. TACROLIMUS [Suspect]
     Active Substance: TACROLIMUS
     Indication: Product used for unknown indication
     Route: 065
  2. ACETAMINOPHEN [Suspect]
     Active Substance: ACETAMINOPHEN
     Indication: Product used for unknown indication
     Dosage: DOSAGE : 650.0 MG, ORAL
     Route: 048
  3. BACTRIM [Concomitant]
     Active Substance: SULFAMETHOXAZOLE\TRIMETHOPRIM
     Indication: Product used for unknown indication
     Route: 065
  4. METHYLPREDNISOLONE [Suspect]
     Active Substance: METHYLPREDNISOLONE
     Indication: Product used for unknown indication
     Dosage: DOSAGE : 100.0 MG, INTRAVENOUS (NOT OTHERWISE SPECIFIED)
     Route: 042
  5. RITUXIMAB [Suspect]
     Active Substance: RITUXIMAB
     Indication: Glomerulonephritis membranous
     Dosage: DOSAGE : 100.0 MG, INTRAVENOUS (NOT OTHERWISE SPECIFIED)?DOSAGE FORM: CONCENTRATE FOR SOLUTON FOR IN
     Route: 042
  6. DIPHENHYDRAMINE [Suspect]
     Active Substance: DIPHENHYDRAMINE
     Indication: Product used for unknown indication
     Dosage: DOSAGE : 50.0 MG
     Route: 065

REACTIONS (7)
  - Discomfort [Unknown]
  - Disease recurrence [Unknown]
  - Hypertension [Unknown]
  - Dyspnoea [Unknown]
  - Renal vein thrombosis [Unknown]
  - Drug ineffective [Unknown]
  - Restless legs syndrome [Unknown]
